FAERS Safety Report 14225326 (Version 3)
Quarter: 2018Q1

REPORT INFORMATION
  Report Type: Spontaneous
  Country: US (occurrence: US)
  Receive Date: 20171127
  Receipt Date: 20180205
  Transmission Date: 20180508
  Serious: No
  Sender: FDA-Public Use
  Company Number: US-PFIZER INC-2017504807

PATIENT
  Age: 17 Year
  Sex: Female
  Weight: 68.4 kg

DRUGS (1)
  1. MEDROXYPROGESTERONE ACETATE. [Suspect]
     Active Substance: MEDROXYPROGESTERONE ACETATE
     Dosage: 1 ML, EVERY 3 MONTHS (1ML BY INJECTION EVERY 12 WEEKS)
     Dates: start: 201612

REACTIONS (2)
  - Product quality issue [Unknown]
  - Menorrhagia [Unknown]

NARRATIVE: CASE EVENT DATE: 201702
